FAERS Safety Report 7904259-5 (Version None)
Quarter: 2011Q4

REPORT INFORMATION
  Report Type: 
  Country: None (occurrence: None)
  Receive Date: 20111109
  Receipt Date: 20111031
  Transmission Date: 20120403
  Serious: Yes (Hospitalization)
  Sender: FDA-Public Use
  Company Number: US-BAYER-2011-050348

PATIENT
  Age: 24 Year
  Sex: Female
  Weight: 151.47 kg

DRUGS (16)
  1. DROSPIRENONE AND ETHINYL ESTRADIOL [Suspect]
     Indication: ACNE
     Dosage: UNK
     Dates: start: 20090721, end: 20091001
  2. GEODON [Concomitant]
     Dosage: 30 MG, HS
     Dates: start: 20091008
  3. IBUPROFEN [Concomitant]
     Dosage: 800 MG, TID
     Dates: start: 20090823
  4. ZYVOX [Concomitant]
     Dosage: UNK
     Dates: start: 20090908
  5. SERTRALINE HYDROCHLORIDE [Concomitant]
     Dosage: 100 MG, QD
     Dates: start: 20090705
  6. SERTRALINE HYDROCHLORIDE [Concomitant]
     Dosage: 100 MG, QD
     Dates: start: 20090730
  7. OMEPRAZOLE [Concomitant]
     Dosage: 20 MG, QD
     Dates: start: 20090904
  8. ZOLPIDEM [Concomitant]
     Dosage: 10 MG, HS
     Dates: start: 20091008
  9. OXYCODONE HCL AND ACETAMINOPHEN [Concomitant]
     Indication: PAIN
     Dosage: UNK UNK, QID
     Dates: start: 20090823
  10. HYDROCODONE BITARTRATE AND ACETAMINOPHEN [Concomitant]
     Dosage: UNK
     Dates: start: 20090908
  11. TRAZODONE HYDROCHLORIDE [Concomitant]
     Dosage: 100 MG, HS
     Dates: start: 20090705
  12. OXYCODONE HCL AND ACETAMINOPHEN [Concomitant]
     Dosage: UNK, QID
     Dates: start: 20091013
  13. CIPRO [Concomitant]
     Dosage: 500 MG, BID
     Dates: start: 20091013
  14. GEODON [Concomitant]
     Dosage: 30 MG, HS
     Dates: start: 20090705
  15. IBUPROFEN [Concomitant]
     Dosage: 800 MG, TID
     Dates: start: 20090808
  16. SULFAMETHOXAZOLE AND TRIMETHOPRIM [Concomitant]
     Dosage: UNK UNK, BID
     Dates: start: 20090908

REACTIONS (5)
  - UMBILICAL HERNIA [None]
  - CHOLECYSTECTOMY [None]
  - PAIN [None]
  - CHOLELITHIASIS [None]
  - CHOLECYSTITIS ACUTE [None]
